FAERS Safety Report 9989864 (Version 1)
Quarter: 2014Q1

REPORT INFORMATION
  Report Type: Spontaneous
  Country: US (occurrence: None)
  Receive Date: 20140123
  Receipt Date: 20140123
  Transmission Date: 20141002
  Serious: Yes (Hospitalization)
  Sender: FDA-Public Use
  Company Number: UTC-037567

PATIENT
  Age: 65 Year
  Sex: Female

DRUGS (1)
  1. REMODULIN [Suspect]
     Indication: PRODUCT USED FOR UNKNOWN INDICATION
     Dosage: 38.88 UG/KG (0.027 UG/KG,1 IN 1 MIN),INTRAVENOUS DRIP
     Route: 041
     Dates: start: 20120920

REACTIONS (1)
  - Bacteraemia [None]
